FAERS Safety Report 25825091 (Version 1)
Quarter: 2025Q3

REPORT INFORMATION
  Report Type: Spontaneous
  Country: US (occurrence: US)
  Receive Date: 20250919
  Receipt Date: 20250919
  Transmission Date: 20251020
  Serious: No
  Sender: PRASCO
  Company Number: US-Prasco Laboratories-PRAS20250343

PATIENT
  Sex: Female

DRUGS (1)
  1. ESTRADIOL [Suspect]
     Active Substance: ESTRADIOL
     Indication: Vulvovaginal pruritus
     Dosage: ONCE PER DAY AT NIGHT, UNKNOWN
     Route: 067
     Dates: start: 20250916

REACTIONS (4)
  - Vulvovaginal pruritus [Unknown]
  - Off label use [Unknown]
  - Product prescribing issue [Unknown]
  - Wrong technique in product usage process [Unknown]

NARRATIVE: CASE EVENT DATE: 20250916
